FAERS Safety Report 9543737 (Version 2)
Quarter: 2013Q3

REPORT INFORMATION
  Report Type: Spontaneous
  Country: US (occurrence: US)
  Receive Date: 20130923
  Receipt Date: 20130926
  Transmission Date: 20140515
  Serious: Yes (Hospitalization)
  Sender: FDA-Public Use
  Company Number: US-BAXTER-2013BAX036676

PATIENT
  Age: 52 Year
  Sex: Male

DRUGS (2)
  1. DIANEAL LOW CALCIUM [Suspect]
     Indication: PERITONEAL DIALYSIS
     Dosage: 11 L TOTAL FILL VOLUME
     Route: 033
     Dates: start: 2013
  2. DIANEAL LOW CALCIUM [Suspect]
     Indication: PERITONEAL DIALYSIS
     Dosage: 11 L TOTAL FILL VOLUME
     Route: 033
     Dates: start: 2013

REACTIONS (3)
  - Chest pain [Recovered/Resolved]
  - Haemoglobin decreased [Recovered/Resolved]
  - Blood potassium increased [Recovered/Resolved]
